FAERS Safety Report 25635822 (Version 1)
Quarter: 2025Q3

REPORT INFORMATION
  Report Type: Spontaneous
  Country: US (occurrence: US)
  Receive Date: 20250802
  Receipt Date: 20250802
  Transmission Date: 20251020
  Serious: Yes (Hospitalization)
  Sender: ELI LILLY AND COMPANY
  Company Number: US-ELI_LILLY_AND_COMPANY-US202508000194

PATIENT
  Age: 46 Year

DRUGS (3)
  1. TRULICITY [Suspect]
     Active Substance: DULAGLUTIDE
     Indication: Type 2 diabetes mellitus
     Route: 065
     Dates: start: 202002, end: 202107
  2. TRULICITY [Suspect]
     Active Substance: DULAGLUTIDE
     Indication: Cardiovascular event prophylaxis
  3. TRULICITY [Suspect]
     Active Substance: DULAGLUTIDE
     Indication: Weight control

REACTIONS (1)
  - Impaired gastric emptying [Unknown]
